FAERS Safety Report 10151825 (Version 1)
Quarter: 2014Q2

REPORT INFORMATION
  Report Type: Report from Study
  Country: US (occurrence: US)
  Receive Date: 20140505
  Receipt Date: 20140505
  Transmission Date: 20141212
  Serious: Yes (Other)
  Sender: FDA-Public Use
  Company Number: US-ROCHE-1391720

PATIENT
  Sex: Male
  Weight: 29.6 kg

DRUGS (12)
  1. CELLCEPT [Suspect]
     Indication: IMMUNOSUPPRESSION
     Route: 048
  2. BACTRIM [Concomitant]
     Dosage: 80/400 MG, 1 TAB EVERY MONDAY, WENSDAY AND FRIDAY MORNING.
     Route: 048
  3. MACRODANTIN [Concomitant]
     Route: 048
  4. CLONIDINE [Concomitant]
     Route: 048
  5. AMLODIPINE [Concomitant]
     Route: 048
  6. SINGULAIR [Concomitant]
     Route: 048
  7. ADDERALL [Concomitant]
     Route: 048
  8. RAPAMUNE [Concomitant]
     Dosage: `
     Route: 048
  9. LAMICTAL [Concomitant]
     Route: 048
  10. CLARITIN [Concomitant]
     Route: 048
  11. DELTASONE [Concomitant]
     Dosage: EVERY MONDAY, WENSDAY, FRIDAY AND SATERDAY MORNING.
     Route: 048
  12. VITAMIN D3 [Concomitant]

REACTIONS (4)
  - Growth retardation [Unknown]
  - Brain oedema [Unknown]
  - Convulsion [Unknown]
  - Anger [Unknown]
